FAERS Safety Report 12366949 (Version 2)
Quarter: 2016Q3

REPORT INFORMATION
  Report Type: Spontaneous
  Country: US (occurrence: US)
  Receive Date: 20160513
  Receipt Date: 20160810
  Transmission Date: 20161109
  Serious: Yes (Other)
  Sender: FDA-Public Use
  Company Number: US-TEVA-646426USA

PATIENT
  Sex: Male

DRUGS (8)
  1. ADDERALL [Concomitant]
     Active Substance: AMPHETAMINE ASPARTATE\AMPHETAMINE SULFATE\DEXTROAMPHETAMINE SACCHARATE\DEXTROAMPHETAMINE SULFATE
  2. PRISTIQ EXTENDED-RELEASE [Concomitant]
     Active Substance: DESVENLAFAXINE SUCCINATE
  3. TRAZODONE [Concomitant]
     Active Substance: TRAZODONE HYDROCHLORIDE
  4. ALPRAZOLAM. [Concomitant]
     Active Substance: ALPRAZOLAM
  5. CLONIDINE. [Concomitant]
     Active Substance: CLONIDINE
  6. ROPINIROLE. [Concomitant]
     Active Substance: ROPINIROLE
  7. ARIPIPRAZOLE. [Suspect]
     Active Substance: ARIPIPRAZOLE
     Indication: BIPOLAR DISORDER
     Route: 065
     Dates: start: 201602
  8. VYVANSE [Concomitant]
     Active Substance: LISDEXAMFETAMINE DIMESYLATE

REACTIONS (11)
  - Extrapyramidal disorder [Recovering/Resolving]
  - Dry mouth [Unknown]
  - Product substitution issue [Unknown]
  - Mania [Recovered/Resolved]
  - Depression [Recovered/Resolved]
  - Bipolar disorder [Unknown]
  - Confusional state [Unknown]
  - Anxiety [Recovered/Resolved]
  - Mood swings [Recovered/Resolved]
  - Decreased interest [Unknown]
  - Drug ineffective [Unknown]

NARRATIVE: CASE EVENT DATE: 20160203
